FAERS Safety Report 8499005-3 (Version None)
Quarter: 2012Q3

REPORT INFORMATION
  Report Type: 
  Country: None (occurrence: None)
  Receive Date: 20120710
  Receipt Date: 20120705
  Transmission Date: 20120928
  Serious: No
  Sender: FDA-Public Use
  Company Number: US-BIOGENIDEC-2012BI023912

PATIENT
  Sex: Female

DRUGS (1)
  1. TYSABRI [Suspect]
     Indication: MULTIPLE SCLEROSIS
     Route: 042
     Dates: start: 20091123, end: 20120123

REACTIONS (9)
  - ANIMAL BITE [None]
  - THERMAL BURN [None]
  - MULTIPLE SCLEROSIS RELAPSE [None]
  - FOOT FRACTURE [None]
  - INFLUENZA [None]
  - SINUSITIS [None]
  - ARTHRALGIA [None]
  - CENTRAL NERVOUS SYSTEM LESION [None]
  - URINARY TRACT INFECTION [None]
